FAERS Safety Report 24270224 (Version 1)
Quarter: 2024Q3

REPORT INFORMATION
  Report Type: Spontaneous
  Country: NL (occurrence: NL)
  Receive Date: 20240830
  Receipt Date: 20240830
  Transmission Date: 20241016
  Serious: Yes (Hospitalization)
  Sender: TEVA
  Company Number: None

PATIENT
  Age: 40 Month
  Sex: Male
  Weight: 15 kg

DRUGS (3)
  1. RISPERIDONE [Suspect]
     Active Substance: RISPERIDONE
     Indication: Behaviour disorder
     Dosage: 1X DAILY 0.3ML, RISPERIDONE DRINK / BRAND NAME NOT SPECIFIED
     Route: 065
     Dates: start: 20221020
  2. TRIMEPRAZINE [Concomitant]
     Active Substance: TRIMEPRAZINE
     Indication: Product used for unknown indication
     Dosage: DOSAGE: 5 MG/ML ALIMEMAZINE DRINK / BRAND NAME NOT SPECIFIED
     Route: 065
  3. SULFAMETHOXAZOLE\TRIMETHOPRIM [Concomitant]
     Active Substance: SULFAMETHOXAZOLE\TRIMETHOPRIM
     Indication: Product used for unknown indication
     Dosage: SUSPENSION, 8/40 MG/ML (MILLIGRAM PER MILLILITER), COTRIMOXAZOLE 48 SUSP ORAL / BRAND NAME NOT SP...
     Route: 065

REACTIONS (2)
  - Pyrexia [Recovered/Resolved]
  - Skin discolouration [Recovered/Resolved]
